FAERS Safety Report 23805407 (Version 1)
Quarter: 2024Q2

REPORT INFORMATION
  Report Type: Spontaneous
  Country: US (occurrence: US)
  Receive Date: 20240502
  Receipt Date: 20240502
  Transmission Date: 20240716
  Serious: No
  Sender: FDA-Public Use
  Company Number: US-TEVA-VS-3171187

PATIENT
  Sex: Female

DRUGS (2)
  1. SOTALOL HYDROCHLORIDE [Suspect]
     Active Substance: SOTALOL HYDROCHLORIDE
     Indication: Product used for unknown indication
     Route: 065
  2. BETAPACE [Suspect]
     Active Substance: SOTALOL HYDROCHLORIDE

REACTIONS (1)
  - Drug ineffective [Unknown]
